FAERS Safety Report 13156697 (Version 1)
Quarter: 2017Q1

REPORT INFORMATION
  Report Type: Spontaneous
  Country: GB (occurrence: GB)
  Receive Date: 20170126
  Receipt Date: 20170126
  Transmission Date: 20170428
  Serious: Yes (Other)
  Sender: FDA-Public Use
  Company Number: GB-ASTRAZENECA-2017SE07328

PATIENT
  Age: 23 Year
  Sex: Female
  Weight: 74 kg

DRUGS (2)
  1. LEVONORGESTREL. [Concomitant]
     Active Substance: LEVONORGESTREL
  2. NEXIUM [Suspect]
     Active Substance: ESOMEPRAZOLE MAGNESIUM
     Indication: DUODENOGASTRIC REFLUX
     Dosage: 20.0MG UNKNOWN
     Route: 048
     Dates: start: 20161225, end: 20170108

REACTIONS (4)
  - Skin irritation [Recovering/Resolving]
  - Dermatitis allergic [Recovering/Resolving]
  - Eyelid oedema [Recovering/Resolving]
  - Skin exfoliation [Recovering/Resolving]

NARRATIVE: CASE EVENT DATE: 20161229
